FAERS Safety Report 5443988-2 (Version None)
Quarter: 2007Q3

REPORT INFORMATION
  Report Type: 
  Country: None (occurrence: None)
  Receive Date: 20070905
  Receipt Date: 20070830
  Transmission Date: 20080115
  Serious: Yes (Hospitalization)
  Sender: FDA-Public Use
  Company Number: DE-ABBOTT-07P-062-0415544-00

PATIENT
  Sex: Female

DRUGS (4)
  1. HUMIRA [Suspect]
     Indication: RHEUMATOID ARTHRITIS
     Dosage: DISCONTINUED FOR SURGERY
     Route: 058
     Dates: start: 20050701, end: 20061101
  2. HUMIRA [Suspect]
     Dates: end: 20070810
  3. CORTISONE ACETATE TAB [Concomitant]
     Indication: RHEUMATOID ARTHRITIS
     Route: 048
  4. COXIBE [Concomitant]
     Indication: RHEUMATOID ARTHRITIS

REACTIONS (2)
  - INFLAMMATION [None]
  - JOINT DESTRUCTION [None]
